FAERS Safety Report 5812293-4 (Version None)
Quarter: 2008Q3

REPORT INFORMATION
  Report Type: 
  Country: None (occurrence: None)
  Receive Date: 20080714
  Receipt Date: 20080630
  Transmission Date: 20090109
  Serious: Yes (Death)
  Sender: FDA-Public Use
  Company Number: 2008AL004708

PATIENT
  Age: 70 Year
  Sex: Male

DRUGS (8)
  1. DIGOXIN [Suspect]
     Indication: CARDIAC FAILURE CONGESTIVE
     Dosage: .25MG DAILY PO
     Route: 048
  2. LASIX [Concomitant]
  3. METOPROLOL TARTRATE [Concomitant]
  4. ALDACTONE [Concomitant]
  5. COUMADIN [Concomitant]
  6. LESCOL [Concomitant]
  7. NIACIN [Concomitant]
  8. CAPTOPRIL [Concomitant]

REACTIONS (1)
  - DEATH [None]
